FAERS Safety Report 5309391-0 (Version None)
Quarter: 2007Q2

REPORT INFORMATION
  Report Type: 
  Country: None (occurrence: None)
  Receive Date: 20070424
  Receipt Date: 20070424
  Transmission Date: 20071010
  Serious: Yes (Hospitalization)
  Sender: FDA-Public Use
  Company Number: None

PATIENT
  Age: 45 Year
  Sex: Male
  Weight: 87 kg

DRUGS (2)
  1. LAMOTRIGINE [Suspect]
     Indication: BACK PAIN
     Dosage: 200 MG BID PO
     Route: 048
     Dates: start: 20050712, end: 20070415
  2. LAMOTRIGINE [Suspect]
     Indication: BACK PAIN
     Dosage: 600 MG ONCE PO
     Route: 048
     Dates: start: 20070415, end: 20070415

REACTIONS (10)
  - ALCOHOL USE [None]
  - BACK PAIN [None]
  - FEELING HOT AND COLD [None]
  - HYPERHIDROSIS [None]
  - INADEQUATE ANALGESIA [None]
  - INCORRECT DOSE ADMINISTERED [None]
  - NAUSEA [None]
  - OVERDOSE [None]
  - TREMOR [None]
  - VISION BLURRED [None]
